FAERS Safety Report 23119394 (Version 1)
Quarter: 2023Q4

REPORT INFORMATION
  Report Type: Spontaneous
  Country: SE (occurrence: SE)
  Receive Date: 20231028
  Receipt Date: 20231028
  Transmission Date: 20240110
  Serious: Yes (Life-Threatening, Other)
  Sender: FDA-Public Use
  Company Number: None

PATIENT
  Age: 53 Year
  Sex: Male

DRUGS (4)
  1. COMIRNATY (TOZINAMERAN) [Suspect]
     Active Substance: TOZINAMERAN
     Indication: Product used for unknown indication
     Dosage: DOS II
     Route: 065
     Dates: start: 20210221, end: 20210221
  2. TERIFLUNOMIDE [Suspect]
     Active Substance: TERIFLUNOMIDE
     Indication: Multiple sclerosis
     Dosage: 14 MG, QD
     Route: 048
     Dates: start: 20141205
  3. COVID-19 vaccine [Concomitant]
     Indication: Immunisation
     Route: 065
  4. COVID-19 vaccine [Concomitant]
     Indication: Immunisation
     Route: 065

REACTIONS (3)
  - Cerebral haemorrhage [Recovered/Resolved with Sequelae]
  - Cerebral haemorrhage [Unknown]
  - Optic neuritis [Unknown]

NARRATIVE: CASE EVENT DATE: 20210227
